FAERS Safety Report 6695505-7 (Version None)
Quarter: 2010Q2

REPORT INFORMATION
  Report Type: 
  Country: None (occurrence: None)
  Receive Date: 20100426
  Receipt Date: 20100416
  Transmission Date: 20101027
  Serious: Yes (Hospitalization, Other)
  Sender: FDA-Public Use
  Company Number: US-RANBAXY-2010US-30859

PATIENT

DRUGS (1)
  1. VERAPAMIL [Suspect]
     Indication: VENTRICULAR TACHYCARDIA
     Dosage: 80 MG, TID
     Route: 048

REACTIONS (3)
  - BUNDLE BRANCH BLOCK LEFT [None]
  - DRUG INEFFECTIVE [None]
  - VENTRICULAR TACHYCARDIA [None]
